FAERS Safety Report 8256253-5 (Version None)
Quarter: 2012Q1

REPORT INFORMATION
  Report Type: 
  Country: None (occurrence: None)
  Receive Date: 20120322
  Receipt Date: 20120109
  Transmission Date: 20120608
  Serious: Yes (Hospitalization)
  Sender: FDA-Public Use
  Company Number: UTC-006085

PATIENT
  Age: 17 Year
  Sex: Female

DRUGS (5)
  1. FUROSEMIDE [Concomitant]
  2. TYVASO [Suspect]
     Indication: PULMONARY ARTERIAL HYPERTENSION
     Dosage: 216 MCG (54 MCG, 4 IN 1 D) INHALATION
     Route: 055
     Dates: start: 20100611, end: 20100907
  3. PREDNISONE TAB [Concomitant]
  4. ALBUTEROL [Concomitant]
  5. PLAQUENIL [Concomitant]

REACTIONS (3)
  - MATERNAL EXPOSURE DURING PREGNANCY [None]
  - PREMATURE LABOUR [None]
  - OXYGEN SATURATION DECREASED [None]
